FAERS Safety Report 7469509-0 (Version None)
Quarter: 2011Q2

REPORT INFORMATION
  Report Type: 
  Country: None (occurrence: None)
  Receive Date: 20110506
  Receipt Date: 20110506
  Transmission Date: 20111010
  Serious: Yes (Life-Threatening)
  Sender: FDA-Public Use
  Company Number: None

PATIENT
  Sex: Female
  Weight: 59.8748 kg

DRUGS (1)
  1. ZETIA [Suspect]
     Indication: BLOOD CHOLESTEROL INCREASED
     Dates: start: 20080301, end: 20090301

REACTIONS (4)
  - TREMOR [None]
  - ASTHENIA [None]
  - FEELING ABNORMAL [None]
  - PERIPHERAL COLDNESS [None]
